FAERS Safety Report 9247785 (Version 2)
Quarter: 2013Q2

REPORT INFORMATION
  Report Type: Spontaneous
  Country: DE (occurrence: DE)
  Receive Date: 20130423
  Receipt Date: 20130620
  Transmission Date: 20140414
  Serious: Yes (Hospitalization, Other)
  Sender: FDA-Public Use
  Company Number: PHHY2013DE039168

PATIENT
  Sex: Female

DRUGS (3)
  1. ZOMETA [Suspect]
     Indication: METASTASES TO BONE
     Dosage: 4 MG, MONTHLY
     Route: 042
     Dates: start: 2002
  2. ZOMETA [Suspect]
     Dosage: UNK UKN, UNK
     Route: 042
  3. EXEMESTANE [Concomitant]
     Indication: BREAST CANCER
     Dosage: 25 MG, UNK
     Route: 048
     Dates: start: 201210

REACTIONS (2)
  - Femur fracture [Recovered/Resolved]
  - Metastases to liver [Unknown]
